FAERS Safety Report 17742092 (Version 5)
Quarter: 2022Q4

REPORT INFORMATION
  Report Type: Spontaneous
  Country: CA (occurrence: CA)
  Receive Date: 20200504
  Receipt Date: 20221019
  Transmission Date: 20230112
  Serious: Yes (Life-Threatening, Hospitalization, Other)
  Sender: FDA-Public Use
  Company Number: NVSC2020CA118886

PATIENT
  Age: 51 Year
  Sex: Male

DRUGS (31)
  1. ATROPINE SULFATE [Suspect]
     Active Substance: ATROPINE SULFATE
     Indication: Overdose
     Dosage: UNK
     Route: 065
  2. ATROPINE SULFATE [Suspect]
     Active Substance: ATROPINE SULFATE
     Dosage: UNK
     Route: 065
  3. DIPHENHYDRAMINE [Suspect]
     Active Substance: DIPHENHYDRAMINE
     Indication: Overdose
     Dosage: 200.0 MG
     Route: 048
  4. VASOPRESSIN [Suspect]
     Active Substance: VASOPRESSIN
     Indication: Overdose
     Dosage: UNK
     Route: 065
  5. VERAPAMIL HYDROCHLORIDE [Suspect]
     Active Substance: VERAPAMIL HYDROCHLORIDE
     Indication: Overdose
     Dosage: 19.2 G
     Route: 065
  6. NOREPINEPHRINE [Suspect]
     Active Substance: NOREPINEPHRINE
     Indication: Overdose
     Dosage: UNK
     Route: 065
  7. POTASSIUM CHLORIDE [Suspect]
     Active Substance: POTASSIUM CHLORIDE
     Indication: Overdose
     Dosage: UNK
     Route: 065
  8. MAGNESIUM CHLORIDE ANHYDROUS [Suspect]
     Active Substance: MAGNESIUM CHLORIDE ANHYDROUS
     Indication: Overdose
     Dosage: UNK
     Route: 065
  9. METHYLENE BLUE [Suspect]
     Active Substance: METHYLENE BLUE
     Indication: Overdose
     Dosage: 80.0 MG
     Route: 065
  10. ACTIVATED CHARCOAL [Suspect]
     Active Substance: ACTIVATED CHARCOAL
     Indication: Overdose
     Dosage: UNK
     Route: 065
  11. VERAPAMIL HYDROCHLORIDE [Suspect]
     Active Substance: VERAPAMIL HYDROCHLORIDE
     Indication: Product used for unknown indication
     Dosage: 19.2 G
     Route: 048
  12. CALCIUM [Suspect]
     Active Substance: CALCIUM
     Indication: Overdose
     Dosage: UNK
     Route: 065
  13. EPINEPHRINE [Suspect]
     Active Substance: EPINEPHRINE
     Indication: Overdose
     Dosage: UNK
     Route: 065
  14. GLUCAGON [Suspect]
     Active Substance: GLUCAGON
     Indication: Overdose
     Dosage: 5.0 MG
     Route: 065
  15. DEXTROSE [Suspect]
     Active Substance: DEXTROSE
     Indication: Overdose
     Dosage: UNK
     Route: 065
  16. GLUTAMIC ACID [Suspect]
     Active Substance: GLUTAMIC ACID
     Indication: Overdose
     Dosage: UNK
     Route: 042
  17. GLUTAMIC ACID [Suspect]
     Active Substance: GLUTAMIC ACID
     Dosage: UNK
     Route: 065
  18. GLYCINE [Suspect]
     Active Substance: GLYCINE
     Indication: Overdose
     Dosage: UNK
     Route: 065
  19. HISTIDINE [Suspect]
     Active Substance: HISTIDINE
     Indication: Overdose
     Dosage: UNK
     Route: 065
  20. ASPARTIC ACID [Suspect]
     Active Substance: ASPARTIC ACID
     Indication: Overdose
     Dosage: UNK
     Route: 065
  21. LYSINE [Suspect]
     Active Substance: LYSINE
     Indication: Overdose
     Dosage: UNK
     Route: 065
  22. PHENYLALANINE [Suspect]
     Active Substance: PHENYLALANINE
     Indication: Overdose
     Dosage: UNK
     Route: 065
  23. PROLINE [Suspect]
     Active Substance: PROLINE
     Indication: Overdose
     Dosage: UNK
     Route: 065
  24. THREONINE [Suspect]
     Active Substance: THREONINE
     Indication: Overdose
     Dosage: UNK
     Route: 065
  25. VALINE [Suspect]
     Active Substance: VALINE
     Indication: Overdose
     Dosage: UNK
     Route: 065
  26. INSULIN NOS [Suspect]
     Active Substance: INSULIN NOS
     Indication: Overdose
     Dosage: 60 IU
     Route: 065
  27. XYLOCAINE WITH EPINEPHRINE [Suspect]
     Active Substance: EPINEPHRINE BITARTRATE\LIDOCAINE HYDROCHLORIDE
     Indication: Overdose
     Dosage: UNK
     Route: 065
  28. VERAPAMIL [Suspect]
     Active Substance: VERAPAMIL HYDROCHLORIDE
     Indication: Overdose
     Dosage: 19.2 G
     Route: 048
  29. DEXTROSE [Suspect]
     Active Substance: DEXTROSE
     Indication: Overdose
     Dosage: UNK
     Route: 065
  30. MAGNESIUM CHLORIDE [Suspect]
     Active Substance: MAGNESIUM CHLORIDE
     Indication: Overdose
     Dosage: UNK
     Route: 065
  31. DEXTROSE\SODIUM CHLORIDE [Suspect]
     Active Substance: DEXTROSE\SODIUM CHLORIDE
     Indication: Overdose
     Dosage: UNK
     Route: 065

REACTIONS (15)
  - Cardiac arrest [Recovered/Resolved]
  - Cardiogenic shock [Recovered/Resolved]
  - Coma scale abnormal [Recovered/Resolved]
  - Compartment syndrome [Recovered/Resolved]
  - Condition aggravated [Recovered/Resolved]
  - Hyperkalaemia [Recovered/Resolved]
  - Hypotension [Recovered/Resolved]
  - Ileus [Recovered/Resolved]
  - Lactic acidosis [Recovered/Resolved]
  - Pulse absent [Recovered/Resolved]
  - Rhabdomyolysis [Recovered/Resolved]
  - Vasoplegia syndrome [Recovered/Resolved]
  - Bradycardia [Recovered/Resolved]
  - Off label use [Recovered/Resolved]
  - Overdose [Recovered/Resolved]
